FAERS Safety Report 5030610-2 (Version None)
Quarter: 2006Q2

REPORT INFORMATION
  Report Type: 
  Country: None (occurrence: None)
  Receive Date: 20060620
  Receipt Date: 20050408
  Transmission Date: 20061013
  Serious: Yes (Hospitalization, Other)
  Sender: FDA-Public Use
  Company Number: US-MERCK-0512USA03171

PATIENT
  Age: 41 Year
  Sex: Male
  Weight: 80 kg

DRUGS (4)
  1. ZOCOR [Suspect]
     Indication: HYPERLIPIDAEMIA
     Route: 048
     Dates: start: 19930429, end: 19930701
  2. ZOCOR [Suspect]
     Route: 048
     Dates: start: 19930801, end: 19981209
  3. ZOCOR [Suspect]
     Route: 048
  4. LIPITOR [Suspect]
     Route: 048
     Dates: start: 19990622

REACTIONS (57)
  - ALLERGY TO ARTHROPOD BITE [None]
  - AORTIC ANEURYSM [None]
  - APPENDICITIS [None]
  - ARTHRALGIA [None]
  - ARTHRITIS [None]
  - BODY TINEA [None]
  - BRONCHITIS [None]
  - BURSITIS [None]
  - CARPAL TUNNEL SYNDROME [None]
  - CELLULITIS [None]
  - CHEST PAIN [None]
  - COLITIS [None]
  - CONSTIPATION [None]
  - COUGH [None]
  - DEPRESSION [None]
  - DERMATITIS [None]
  - DIARRHOEA [None]
  - DIVERTICULUM [None]
  - DRUG INEFFECTIVE [None]
  - DUODENITIS [None]
  - EPICONDYLITIS [None]
  - ERECTILE DYSFUNCTION [None]
  - EXCORIATION [None]
  - FAECES DISCOLOURED [None]
  - FLANK PAIN [None]
  - FOLLICULITIS [None]
  - GASTRITIS [None]
  - GASTROINTESTINAL PAIN [None]
  - GASTROOESOPHAGEAL REFLUX DISEASE [None]
  - HAEMORRHOIDS [None]
  - HAND FRACTURE [None]
  - HEADACHE [None]
  - HEPATOMEGALY [None]
  - HYPERTENSION [None]
  - HYPOAESTHESIA [None]
  - IRRITABLE BOWEL SYNDROME [None]
  - LIMB DISCOMFORT [None]
  - LOSS OF CONSCIOUSNESS [None]
  - OTITIS MEDIA [None]
  - PAIN IN EXTREMITY [None]
  - PANCREATITIS ACUTE [None]
  - PARONYCHIA [None]
  - PEPTIC ULCER [None]
  - PHARYNGITIS [None]
  - PHARYNGOLARYNGEAL PAIN [None]
  - PLEURITIC PAIN [None]
  - PREMATURE EJACULATION [None]
  - PYREXIA [None]
  - RHABDOMYOLYSIS [None]
  - RHINITIS ALLERGIC [None]
  - RIB FRACTURE [None]
  - SINUS CONGESTION [None]
  - SINUSITIS [None]
  - SKIN LACERATION [None]
  - SKIN LESION [None]
  - STRESS [None]
  - UPPER RESPIRATORY TRACT INFECTION [None]
